FAERS Safety Report 17582753 (Version 1)
Quarter: 2020Q1

REPORT INFORMATION
  Report Type: Spontaneous
  Country: US (occurrence: US)
  Receive Date: 20200325
  Receipt Date: 20200325
  Transmission Date: 20200409
  Serious: No
  Sender: FDA-Public Use
  Company Number: US-BIOMARINAP-US-2020-128859

PATIENT
  Age: 25 Year
  Sex: Male

DRUGS (1)
  1. KUVAN [Suspect]
     Active Substance: SAPROPTERIN DIHYDROCHLORIDE
     Indication: AMINO ACID LEVEL INCREASED
     Dosage: UNK
     Route: 065
     Dates: start: 20190715

REACTIONS (2)
  - Haemoptysis [Unknown]
  - Haematochezia [Unknown]

NARRATIVE: CASE EVENT DATE: 20200223
